FAERS Safety Report 9224156 (Version 1)
Quarter: 2013Q2

REPORT INFORMATION
  Report Type: Spontaneous
  Country: US (occurrence: US)
  Receive Date: 20130411
  Receipt Date: 20130411
  Transmission Date: 20140414
  Serious: No
  Sender: FDA-Public Use
  Company Number: US-PFIZER INC-2013113180

PATIENT
  Sex: Female
  Weight: 136 kg

DRUGS (7)
  1. LYRICA [Suspect]
     Dosage: 100 MG, 3X/DAY
     Dates: start: 2004
  2. NEURONTIN [Suspect]
     Dosage: 600 MG, 4X/DAY
     Dates: start: 2004
  3. LIPITOR [Suspect]
     Dosage: 40 MG, 1X/DAY
     Dates: start: 2004
  4. AMITRIPTYLINE [Concomitant]
     Indication: DEPRESSION
     Dosage: UNK
  5. FLUOXETINE [Concomitant]
     Indication: DEPRESSION
     Dosage: UNK
  6. CLONIDINE [Concomitant]
     Dosage: UNK
  7. METFORMIN [Concomitant]
     Indication: DIABETES MELLITUS
     Dosage: UNK

REACTIONS (3)
  - Pain [Not Recovered/Not Resolved]
  - Hypoaesthesia [Not Recovered/Not Resolved]
  - Diabetic neuropathy [Not Recovered/Not Resolved]
